FAERS Safety Report 9162517 (Version 1)
Quarter: 2013Q1

REPORT INFORMATION
  Report Type: Spontaneous
  Country: US (occurrence: US)
  Receive Date: 20130314
  Receipt Date: 20130314
  Transmission Date: 20140127
  Serious: Yes (Hospitalization)
  Sender: FDA-Public Use
  Company Number: US-MYLANLABS-2013S1004667

PATIENT
  Age: 67 Year
  Sex: Male

DRUGS (1)
  1. SUMATRIPTAN\SUMATRIPTAN SUCCINATE [Suspect]
     Indication: MIGRAINE
     Route: 048
     Dates: end: 201303

REACTIONS (3)
  - Hallucination, visual [Recovered/Resolved]
  - Non-cardiac chest pain [Recovered/Resolved]
  - Medication overuse headache [Not Recovered/Not Resolved]
